FAERS Safety Report 5335420-4 (Version None)
Quarter: 2007Q2

REPORT INFORMATION
  Report Type: 
  Country: None (occurrence: None)
  Receive Date: 20070522
  Receipt Date: 20070509
  Transmission Date: 20071010
  Serious: Yes (Hospitalization)
  Sender: FDA-Public Use
  Company Number: MEDI-0004401(1)

PATIENT
  Age: 7 Month
  Sex: 0
  Weight: 6.6 kg

DRUGS (5)
  1. SYNAGIS [Suspect]
     Indication: ANTIVIRAL PROPHYLAXIS
     Dosage: SEE IMAGE
     Route: 030
     Dates: start: 20051027, end: 20060119
  2. SYNAGIS [Suspect]
     Indication: ANTIVIRAL PROPHYLAXIS
     Dosage: SEE IMAGE
     Route: 030
     Dates: start: 20060314, end: 20060314
  3. SYNAGIS [Suspect]
     Indication: ANTIVIRAL PROPHYLAXIS
     Dosage: SEE IMAGE
     Route: 030
     Dates: start: 20051027
  4. SYNAGIS [Suspect]
     Indication: ANTIVIRAL PROPHYLAXIS
     Dosage: SEE IMAGE
     Route: 030
     Dates: start: 20051124
  5. SYNAGIS [Suspect]
     Indication: ANTIVIRAL PROPHYLAXIS
     Dosage: SEE IMAGE
     Route: 030
     Dates: start: 20060214

REACTIONS (2)
  - ASTHMATIC CRISIS [None]
  - INTESTINAL OBSTRUCTION [None]
